FAERS Safety Report 21602434 (Version 2)
Quarter: 2022Q4

REPORT INFORMATION
  Report Type: Spontaneous
  Country: IN (occurrence: IN)
  Receive Date: 20221116
  Receipt Date: 20221129
  Transmission Date: 20230113
  Serious: Yes (Hospitalization, Other)
  Sender: FDA-Public Use
  Company Number: IN-MACLEODS PHARMACEUTICALS US LTD-MAC2022038268

PATIENT

DRUGS (1)
  1. PANTOPRAZOLE SODIUM [Suspect]
     Active Substance: PANTOPRAZOLE SODIUM
     Indication: Gastritis
     Dosage: 40 MILLIGRAM, QD
     Route: 065

REACTIONS (4)
  - Metabolic alkalosis [Recovering/Resolving]
  - Axonal neuropathy [Recovering/Resolving]
  - Peripheral sensory neuropathy [Recovering/Resolving]
  - Tubulointerstitial nephritis [Recovering/Resolving]
